FAERS Safety Report 4575096-7 (Version None)
Quarter: 2005Q1

REPORT INFORMATION
  Report Type: 
  Country: None (occurrence: None)
  Receive Date: 20050208
  Receipt Date: 20050128
  Transmission Date: 20050727
  Serious: Yes (Other)
  Sender: FDA-Public Use
  Company Number: AU-GLAXOSMITHKLINE-B0369954A

PATIENT
  Age: 53 Year
  Sex: Female
  Weight: 80 kg

DRUGS (3)
  1. IMIGRAN [Suspect]
     Indication: MIGRAINE
     Dosage: 6MG SINGLE DOSE
     Route: 058
     Dates: start: 19920722
  2. MIGRAL [Concomitant]
     Indication: MIGRAINE
     Dosage: 2U AS REQUIRED
     Route: 065
  3. CODALGIN [Concomitant]
     Indication: MIGRAINE
     Route: 065

REACTIONS (2)
  - INJECTION SITE NECROSIS [None]
  - INJECTION SITE SCAR [None]
